FAERS Safety Report 17805552 (Version 2)
Quarter: 2021Q1

REPORT INFORMATION
  Report Type: Spontaneous
  Country: CA (occurrence: CA)
  Receive Date: 20200520
  Receipt Date: 20210308
  Transmission Date: 20210419
  Serious: Yes (Other)
  Sender: FDA-Public Use
  Company Number: CA-AUROBINDO-AUR-APL-2020-025096

PATIENT
  Age: 42 Year
  Sex: Male

DRUGS (17)
  1. APO?DEXAMETHASONE [Suspect]
     Active Substance: DEXAMETHASONE
     Indication: CHEMOTHERAPY
     Dosage: UNK
     Route: 065
  2. APO?DEXAMETHASONE [Suspect]
     Active Substance: DEXAMETHASONE
     Indication: CHEMOTHERAPY
  3. APO?PREDNISONE [Suspect]
     Active Substance: PREDNISONE
     Indication: POEMS SYNDROME
     Dosage: UNK
     Route: 065
  4. APO?DEXAMETHASONE [Suspect]
     Active Substance: DEXAMETHASONE
     Indication: POEMS SYNDROME
     Dosage: UNK
     Route: 065
  5. APO?DEXAMETHASONE [Suspect]
     Active Substance: DEXAMETHASONE
     Indication: POEMS SYNDROME
     Dosage: UNK
     Route: 065
  6. APO?PREDNISONE [Suspect]
     Active Substance: PREDNISONE
     Indication: CHEMOTHERAPY
  7. MELPHALAN. [Suspect]
     Active Substance: MELPHALAN
     Indication: CHEMOTHERAPY
  8. APO?DEXAMETHASONE [Suspect]
     Active Substance: DEXAMETHASONE
     Dosage: UNK
     Route: 065
  9. CYCLOPHOSPHAMIDE. [Suspect]
     Active Substance: CYCLOPHOSPHAMIDE
     Indication: POEMS SYNDROME
     Dosage: UNK
     Route: 065
  10. CYCLOPHOSPHAMIDE. [Suspect]
     Active Substance: CYCLOPHOSPHAMIDE
     Indication: CHEMOTHERAPY
  11. MELPHALAN. [Suspect]
     Active Substance: MELPHALAN
     Indication: POEMS SYNDROME
     Dosage: UNK
     Route: 065
  12. APO?PREDNISONE [Suspect]
     Active Substance: PREDNISONE
     Indication: POEMS SYNDROME
     Dosage: UNK
     Route: 065
  13. APO?PREDNISONE [Suspect]
     Active Substance: PREDNISONE
     Indication: CHEMOTHERAPY
  14. APO?PREDNISONE [Suspect]
     Active Substance: PREDNISONE
     Indication: CHEMOTHERAPY
     Dosage: UNK
     Route: 065
  15. PROCYTOX [Suspect]
     Active Substance: CYCLOPHOSPHAMIDE
     Indication: POEMS SYNDROME
     Dosage: UNK
     Route: 065
  16. PROCYTOX [Suspect]
     Active Substance: CYCLOPHOSPHAMIDE
     Indication: CHEMOTHERAPY
     Dosage: UNK
     Route: 065
  17. APO?PREDNISONE [Suspect]
     Active Substance: PREDNISONE
     Indication: POEMS SYNDROME
     Dosage: UNK
     Route: 065

REACTIONS (4)
  - POEMS syndrome [Recovered/Resolved]
  - Condition aggravated [Recovered/Resolved]
  - Therapy non-responder [Recovered/Resolved]
  - Off label use [Unknown]
